FAERS Safety Report 18545050 (Version 1)
Quarter: 2020Q4

REPORT INFORMATION
  Report Type: Spontaneous
  Country: US (occurrence: US)
  Receive Date: 20201124
  Receipt Date: 20201124
  Transmission Date: 20210114
  Serious: No
  Sender: FDA-Public Use
  Company Number: None

PATIENT
  Age: 57 Year
  Sex: Male
  Weight: 80.4 kg

DRUGS (3)
  1. OXALIPLATIN 100MG [Suspect]
     Active Substance: OXALIPLATIN
     Indication: METASTASES TO LIVER
     Route: 042
     Dates: start: 20200928, end: 20201104
  2. OXALIPLATIN 50MG [Suspect]
     Active Substance: OXALIPLATIN
  3. OXALIPLATIN 100MG [Suspect]
     Active Substance: OXALIPLATIN
     Indication: COLORECTAL CANCER
     Route: 042
     Dates: start: 20200928, end: 20201104

REACTIONS (2)
  - Chills [None]
  - Dyspnoea [None]

NARRATIVE: CASE EVENT DATE: 20201104
